FAERS Safety Report 7998332-3 (Version None)
Quarter: 2011Q4

REPORT INFORMATION
  Report Type: 
  Country: None (occurrence: None)
  Receive Date: 20111221
  Receipt Date: 20110719
  Transmission Date: 20120403
  Serious: No
  Sender: FDA-Public Use
  Company Number: US-GLAXOSMITHKLINE-A0937341A

PATIENT
  Age: 56 Year
  Sex: Male

DRUGS (6)
  1. PENTASA [Concomitant]
  2. OMACOR [Suspect]
     Indication: BLOOD TRIGLYCERIDES INCREASED
     Dosage: 2CAP TWICE PER DAY
     Route: 048
     Dates: start: 20060101
  3. ALPRAZOLAM [Concomitant]
  4. CENTRUM VITAMIN [Concomitant]
  5. ASPIRIN [Concomitant]
  6. GAS X [Concomitant]
     Indication: COLITIS

REACTIONS (3)
  - ABDOMINAL DISTENSION [None]
  - FLATULENCE [None]
  - CHEST PAIN [None]
